FAERS Safety Report 8450958-9 (Version None)
Quarter: 2012Q2

REPORT INFORMATION
  Report Type: 
  Country: None (occurrence: None)
  Receive Date: 20120620
  Receipt Date: 20120613
  Transmission Date: 20120825
  Serious: Yes (Other)
  Sender: FDA-Public Use
  Company Number: AR-ROCHE-1047596

PATIENT
  Age: 75 Year
  Sex: Female

DRUGS (1)
  1. LUCENTIS [Suspect]
     Indication: MACULOPATHY
     Dosage: A TOTAL OF ONE APPLICATION
     Route: 050
     Dates: start: 20120201, end: 20120201

REACTIONS (3)
  - EYE DISORDER [None]
  - GASTRIC NEOPLASM [None]
  - EYE PAIN [None]
